FAERS Safety Report 10164086 (Version 1)
Quarter: 2014Q2

REPORT INFORMATION
  Report Type: Spontaneous
  Country: US (occurrence: US)
  Receive Date: 20140510
  Receipt Date: 20140510
  Transmission Date: 20141212
  Serious: No
  Sender: FDA-Public Use
  Company Number: US-BRISTOL-MYERS SQUIBB COMPANY-19915859

PATIENT
  Age: 56 Year
  Sex: Male
  Weight: 95.24 kg

DRUGS (3)
  1. BYETTA PEN DISPOSABLE [Suspect]
     Indication: TYPE 2 DIABETES MELLITUS
     Dosage: DOSE WAS INCREASED TO 10MCG
     Route: 058
  2. METFORMIN HCL XR [Suspect]
  3. GLIMEPIRIDE [Suspect]

REACTIONS (3)
  - Blood glucose increased [Unknown]
  - Infrequent bowel movements [Unknown]
  - Product quality issue [Unknown]
